FAERS Safety Report 19279918 (Version 2)
Quarter: 2021Q2

REPORT INFORMATION
  Report Type: Spontaneous
  Country: AU (occurrence: AU)
  Receive Date: 20210520
  Receipt Date: 20210621
  Transmission Date: 20210717
  Serious: Yes (Other)
  Sender: FDA-Public Use
  Company Number: AU-BAXTER-2021BAX011748

PATIENT
  Age: 74 Year
  Sex: Male

DRUGS (8)
  1. SODIUM CHLORIDE (VIAFLO) 1000ML [Suspect]
     Active Substance: SODIUM CHLORIDE
     Indication: MEDICATION DILUTION
     Dosage: VIA PHASEAL ADAPTER
     Route: 042
     Dates: start: 20210510, end: 20210511
  2. PACLITAXEL EBEWE [Suspect]
     Active Substance: PACLITAXEL
     Route: 042
     Dates: start: 20210510
  3. SODIUM CHLORIDE (VIAFLO) 1000ML [Suspect]
     Active Substance: SODIUM CHLORIDE
     Route: 042
     Dates: start: 20210510
  4. IRBESARTAN. [Concomitant]
     Active Substance: IRBESARTAN
     Indication: HYPERTENSION
     Route: 048
  5. CARBOPLATIN. [Suspect]
     Active Substance: CARBOPLATIN
     Indication: NON-SMALL CELL LUNG CANCER
     Route: 065
     Dates: start: 20210510
  6. FELODIPINE. [Concomitant]
     Active Substance: FELODIPINE
     Indication: HYPERTENSION
     Route: 048
  7. PACLITAXEL EBEWE [Suspect]
     Active Substance: PACLITAXEL
     Indication: NON-SMALL CELL LUNG CANCER
     Route: 042
     Dates: start: 20210510, end: 20210511
  8. FLUTICASONE+SALMETEROL [Concomitant]
     Active Substance: FLUTICASONE PROPIONATE\SALMETEROL XINAFOATE
     Indication: ASTHMA
     Route: 055

REACTIONS (1)
  - Anaphylactic reaction [Recovered/Resolved]

NARRATIVE: CASE EVENT DATE: 20210510
